FAERS Safety Report 16906860 (Version 1)
Quarter: 2019Q4

REPORT INFORMATION
  Report Type: Spontaneous
  Country: US (occurrence: US)
  Receive Date: 20191011
  Receipt Date: 20191011
  Transmission Date: 20200122
  Serious: No
  Sender: FDA-Public Use
  Company Number: US-ASTRAZENECA-2019SF31130

PATIENT
  Age: 67 Year
  Sex: Female
  Weight: 110.2 kg

DRUGS (5)
  1. VAGISIL ANTI ITCH ORIGINAL STRENGTH [Concomitant]
     Active Substance: BENZOCAINE\RESORCINOL
     Indication: FUNGAL INFECTION
  2. XIGDUO XR [Suspect]
     Active Substance: DAPAGLIFLOZIN PROPANEDIOL\METFORMIN HYDROCHLORIDE
     Indication: RENAL TUBULAR ACIDOSIS
     Dosage: 5.0MG UNKNOWN
     Route: 048
     Dates: start: 20190408, end: 20190808
  3. FARXIGA [Suspect]
     Active Substance: DAPAGLIFLOZIN PROPANEDIOL
     Indication: TYPE 2 DIABETES MELLITUS
     Route: 048
     Dates: start: 2019, end: 20190808
  4. FLUCONAZOLE. [Concomitant]
     Active Substance: FLUCONAZOLE
     Indication: FUNGAL INFECTION
     Route: 048
     Dates: start: 2019
  5. MONISTAT [Concomitant]
     Active Substance: MICONAZOLE NITRATE
     Indication: FUNGAL INFECTION

REACTIONS (11)
  - Poor quality sleep [Unknown]
  - Vulvovaginal candidiasis [Recovered/Resolved]
  - Fungal infection [Not Recovered/Not Resolved]
  - Drug ineffective [Unknown]
  - Discomfort [Unknown]
  - Mass [Recovered/Resolved]
  - Condition aggravated [Unknown]
  - Glucose urine present [Unknown]
  - Thermal burn [Unknown]
  - Pruritus [Unknown]
  - Pain [Recovered/Resolved]

NARRATIVE: CASE EVENT DATE: 2019
